FAERS Safety Report 4323602-X (Version None)
Quarter: 2004Q1

REPORT INFORMATION
  Report Type: 
  Country: None (occurrence: None)
  Receive Date: 20040322
  Receipt Date: 20040310
  Transmission Date: 20041129
  Serious: Yes (Hospitalization)
  Sender: FDA-Public Use
  Company Number: GB-JNJFOC-20040302364

PATIENT
  Sex: Female

DRUGS (6)
  1. REMICADE [Suspect]
     Indication: RHEUMATOID ARTHRITIS
     Dosage: 10 MG/ML, INTRAVENOUS
     Route: 042
  2. AZATHIOPRINE [Suspect]
     Indication: RHEUMATOID ARTHRITIS
     Dosage: 25 MG/ML, ORAL
     Route: 048
  3. PREDNISOLONE [Concomitant]
  4. CELEBREX [Concomitant]
  5. CO-PROXAMOL (APOREX) [Concomitant]
  6. OXYGEN (OXYGEN) [Concomitant]

REACTIONS (3)
  - CONDITION AGGRAVATED [None]
  - DRUG INTERACTION [None]
  - PULMONARY FIBROSIS [None]
